FAERS Safety Report 12927703 (Version 1)
Quarter: 2016Q4

REPORT INFORMATION
  Report Type: Spontaneous
  Country: US (occurrence: US)
  Receive Date: 20161110
  Receipt Date: 20161110
  Transmission Date: 20170207
  Serious: Yes (Hospitalization)
  Sender: FDA-Public Use
  Company Number: None

PATIENT
  Age: 42 Year
  Sex: Female
  Weight: 72.73 kg

DRUGS (2)
  1. CYCLOPHOSPHAMIDE. [Suspect]
     Active Substance: CYCLOPHOSPHAMIDE
     Dates: end: 20161027
  2. DOXORUBICIN HYDROCHLORIDE. [Suspect]
     Active Substance: DOXORUBICIN HYDROCHLORIDE
     Dates: end: 20161027

REACTIONS (7)
  - Fatigue [None]
  - Vomiting [None]
  - Asthenia [None]
  - Neutropenia [None]
  - Viral upper respiratory tract infection [None]
  - Pancytopenia [None]
  - Nausea [None]

NARRATIVE: CASE EVENT DATE: 20161102
